FAERS Safety Report 6243309-1 (Version None)
Quarter: 2009Q2

REPORT INFORMATION
  Report Type: 
  Country: None (occurrence: None)
  Receive Date: 20090624
  Receipt Date: 20090618
  Transmission Date: 20091009
  Serious: Yes (Life-Threatening, Other)
  Sender: FDA-Public Use
  Company Number: PHHY2009BR24538

PATIENT
  Age: 43 Year
  Sex: Male

DRUGS (5)
  1. TRILEPTAL [Suspect]
     Indication: CONVULSION
     Dosage: 1 DF, QD
     Route: 048
     Dates: start: 20090613
  2. TRILEPTAL [Suspect]
     Dosage: 1 DF, QD
     Route: 048
     Dates: start: 20090614
  3. ENALAPRIL MALEATE [Concomitant]
     Indication: HYPERTENSION
     Dosage: 10 MG, 2 TABLETS DAILY
     Route: 048
     Dates: end: 20090616
  4. HYDANTAL [Concomitant]
     Dosage: 100 MG, TID
  5. CLONAZEPAM [Concomitant]
     Dosage: 2 MG QD
     Route: 048

REACTIONS (16)
  - APPARENT DEATH [None]
  - BLOOD PRESSURE INCREASED [None]
  - CHILLS [None]
  - DIZZINESS [None]
  - DYSGEUSIA [None]
  - DYSPNOEA [None]
  - FEELING HOT [None]
  - HEADACHE [None]
  - HYPOAESTHESIA [None]
  - INCORRECT DOSE ADMINISTERED [None]
  - INSOMNIA [None]
  - MALAISE [None]
  - NAUSEA [None]
  - NIGHTMARE [None]
  - TACHYCARDIA [None]
  - TINNITUS [None]
